FAERS Safety Report 18418891 (Version 1)
Quarter: 2020Q4

REPORT INFORMATION
  Report Type: Spontaneous
  Country: US (occurrence: US)
  Receive Date: 20201022
  Receipt Date: 20201022
  Transmission Date: 20210114
  Serious: Yes (Hospitalization)
  Sender: FDA-Public Use
  Company Number: None

PATIENT
  Age: 68 Year
  Sex: Female
  Weight: 48.99 kg

DRUGS (21)
  1. EMEND [Concomitant]
     Active Substance: APREPITANT
  2. SIMVASTATIN. [Concomitant]
     Active Substance: SIMVASTATIN
  3. CALCIUM CARBONATE ANTACID [Concomitant]
  4. PACLITAXEL 150 MG/25 ML VIAL [Concomitant]
  5. GEMCITABINE 1 GM VIAL [Concomitant]
  6. AMLODIPINE BESYLATE. [Concomitant]
     Active Substance: AMLODIPINE BESYLATE
  7. RETACRIT [Concomitant]
     Active Substance: EPOETIN ALFA-EPBX
  8. DEXAMETHASONE. [Concomitant]
     Active Substance: DEXAMETHASONE
  9. OXALIPLATIN 50 MG/10 ML VIAL [Concomitant]
  10. ONDANSETRON 4 MG/2 ML VIAL [Concomitant]
  11. VITAMIN B6 [Concomitant]
     Active Substance: PYRIDOXINE HYDROCHLORIDE
  12. MYCOPHENOLATE MOFETIL. [Concomitant]
     Active Substance: MYCOPHENOLATE MOFETIL
  13. ZARXIO [Suspect]
     Active Substance: FILGRASTIM-SNDZ
     Indication: CHOLANGIOCARCINOMA
     Dosage: ?          OTHER FREQUENCY:QD X 3D EVERY 14D;?
     Route: 042
     Dates: start: 20190729, end: 20201022
  14. METOPROLOL SUCCINATE ER [Concomitant]
     Active Substance: METOPROLOL SUCCINATE
  15. VITAMIN D3 [Concomitant]
     Active Substance: CHOLECALCIFEROL
  16. FAMOTIDINE 20 MG/2 ML VIAL [Concomitant]
  17. DIPHENHYDRAMINE 50 MG/ML VIAL [Concomitant]
  18. LEUCOVORIN 200 MG VIAL [Concomitant]
  19. FLUOROURACIL 1000 MG/20 ML VIAL [Concomitant]
  20. AVASTIN [Concomitant]
     Active Substance: BEVACIZUMAB
  21. XARELTO [Concomitant]
     Active Substance: RIVAROXABAN

REACTIONS (3)
  - General physical health deterioration [None]
  - Aphasia [None]
  - Dysphagia [None]

NARRATIVE: CASE EVENT DATE: 20201022
